FAERS Safety Report 4411530-0 (Version None)
Quarter: 2004Q2

REPORT INFORMATION
  Report Type: 
  Country: None (occurrence: None)
  Receive Date: 20040630
  Receipt Date: 20040315
  Transmission Date: 20050107
  Serious: No
  Sender: FDA-Public Use
  Company Number: 04P-163-0253352-00

PATIENT
  Age: 72 Year
  Sex: Male
  Weight: 90.7194 kg

DRUGS (10)
  1. HUMIRA [Suspect]
     Indication: RHEUMATOID ARTHRITIS
     Dosage: 40 MG, 1 IN 2 WK, SUBCUTANEOUS
     Route: 058
     Dates: start: 20031201
  2. PREDNISONE [Concomitant]
  3. FELODIPINE [Concomitant]
  4. ATENOLOL [Concomitant]
  5. EPOETIN ALFA [Concomitant]
  6. IRON [Concomitant]
  7. FOLIC ACID [Concomitant]
  8. MULTIVITAMIN [Concomitant]
  9. COUMADIN [Concomitant]
  10. RANITIDINE [Concomitant]

REACTIONS (2)
  - BENIGN PROSTATIC HYPERPLASIA [None]
  - URINARY TRACT INFECTION [None]
